FAERS Safety Report 8561913-2 (Version None)
Quarter: 2012Q3

REPORT INFORMATION
  Report Type: 
  Country: None (occurrence: None)
  Receive Date: 20120802
  Receipt Date: 20120706
  Transmission Date: 20120928
  Serious: No
  Sender: FDA-Public Use
  Company Number: US-AMGEN-USASP2011007748

PATIENT
  Sex: Male

DRUGS (2)
  1. ENBREL [Suspect]
     Indication: RHEUMATOID ARTHRITIS
     Dosage: 50 MG, 2 TIMES/WK
     Dates: start: 20110131
  2. ENBREL [Suspect]
     Indication: PSORIASIS

REACTIONS (3)
  - DRUG INEFFECTIVE [None]
  - SKIN HAEMORRHAGE [None]
  - SKIN FISSURES [None]
